FAERS Safety Report 18303358 (Version 3)
Quarter: 2020Q4

REPORT INFORMATION
  Report Type: Report from Study
  Country: CA (occurrence: CA)
  Receive Date: 20200923
  Receipt Date: 20201202
  Transmission Date: 20210113
  Serious: Yes (Other)
  Sender: FDA-Public Use
  Company Number: CA-JNJFOC-20200926952

PATIENT
  Age: 64 Year
  Sex: Male
  Weight: 54.93 kg

DRUGS (1)
  1. REMICADE [Suspect]
     Active Substance: INFLIXIMAB
     Indication: ANKYLOSING SPONDYLITIS
     Dosage: ON 28-OCT-2020, THE PATIENT RECEIVED 41ST 600 MG OF INFLIXIMAB RECOMBINANT
     Route: 042
     Dates: start: 20161108

REACTIONS (1)
  - Bladder cancer stage 0, with cancer in situ [Unknown]
